FAERS Safety Report 5800608-2 (Version None)
Quarter: 2008Q3

REPORT INFORMATION
  Report Type: 
  Country: None (occurrence: None)
  Receive Date: 20080703
  Receipt Date: 20080624
  Transmission Date: 20090109
  Serious: Yes (Hospitalization)
  Sender: FDA-Public Use
  Company Number: US-AMGEN-US289530

PATIENT
  Sex: Female

DRUGS (4)
  1. NEULASTA [Suspect]
     Indication: CHEMOTHERAPY
     Dates: start: 20080528
  2. CYCLOPHOSPHAMIDE [Concomitant]
     Dates: start: 20080527
  3. DOCETAXEL [Concomitant]
     Dates: start: 20080527
  4. DOXORUBICIN HYDROCHLORIDE [Concomitant]
     Dates: start: 20080527

REACTIONS (2)
  - NEUTROPENIA [None]
  - PYREXIA [None]
